FAERS Safety Report 25529439 (Version 1)
Quarter: 2025Q3

REPORT INFORMATION
  Report Type: Spontaneous
  Country: JP (occurrence: JP)
  Receive Date: 20250708
  Receipt Date: 20250708
  Transmission Date: 20251021
  Serious: Yes (Hospitalization)
  Sender: MYLAN
  Company Number: JP-MYLANLABS-2025M1055968

PATIENT
  Age: 58 Year
  Sex: Male

DRUGS (8)
  1. CELECOXIB [Suspect]
     Active Substance: CELECOXIB
     Indication: Product used for unknown indication
  2. CELECOXIB [Suspect]
     Active Substance: CELECOXIB
  3. CELECOXIB [Suspect]
     Active Substance: CELECOXIB
     Route: 048
  4. CELECOXIB [Suspect]
     Active Substance: CELECOXIB
     Route: 048
  5. CELECOXIB [Suspect]
     Active Substance: CELECOXIB
  6. CELECOXIB [Suspect]
     Active Substance: CELECOXIB
  7. CELECOXIB [Suspect]
     Active Substance: CELECOXIB
     Route: 048
  8. CELECOXIB [Suspect]
     Active Substance: CELECOXIB
     Route: 048

REACTIONS (2)
  - Drug eruption [Unknown]
  - Erythema multiforme [Unknown]
